FAERS Safety Report 5620467-0 (Version None)
Quarter: 2008Q1

REPORT INFORMATION
  Report Type: 
  Country: None (occurrence: None)
  Receive Date: 20080208
  Receipt Date: 20080204
  Transmission Date: 20080703
  Serious: Yes (Death)
  Sender: FDA-Public Use
  Company Number: US-GENENTECH-255405

PATIENT
  Sex: Male

DRUGS (6)
  1. RANIBIZUMAB [Suspect]
     Indication: MACULAR DEGENERATION
     Dosage: 0.3 MG, UNKNOWN
     Route: 065
  2. FLURAZEPAM [Concomitant]
     Indication: INSOMNIA
     Dosage: UNK UNK, UNKNOWN
     Route: 065
     Dates: start: 19930101
  3. FOSAMAX [Concomitant]
     Indication: OSTEOPOROSIS
     Dosage: UNK UNK, UNKNOWN
     Route: 065
     Dates: start: 20000101
  4. CALCIUM GLUCONATE [Concomitant]
     Indication: OSTEOPOROSIS
     Dosage: UNK UNK, UNKNOWN
     Route: 065
     Dates: start: 20000101
  5. ARTIFICIAL TEARS [Concomitant]
     Indication: KERATITIS
     Dosage: UNK UNK, UNKNOWN
     Route: 061
     Dates: start: 20040729
  6. VALIUM [Concomitant]
     Indication: INSOMNIA
     Dosage: 5 MG, UNKNOWN
     Route: 065
     Dates: start: 20051006

REACTIONS (1)
  - DEATH [None]
